FAERS Safety Report 10098465 (Version 1)
Quarter: 2014Q2

REPORT INFORMATION
  Report Type: Spontaneous
  Country: TR (occurrence: None)
  Receive Date: 20140421
  Receipt Date: 20140421
  Transmission Date: 20141212
  Serious: Yes (Hospitalization)
  Sender: FDA-Public Use
  Company Number: 2014AP002658

PATIENT
  Age: 30 Year
  Sex: Male

DRUGS (2)
  1. FERRIPROX [Suspect]
     Indication: THALASSAEMIA BETA
  2. DEFEROXAMINE (DEFEROXAMINE) [Concomitant]

REACTIONS (9)
  - Ventricular tachycardia [None]
  - Palpitations [None]
  - Dyspnoea [None]
  - Blood pressure decreased [None]
  - Haemodynamic instability [None]
  - Loss of consciousness [None]
  - Pulse absent [None]
  - Left ventricular hypertrophy [None]
  - Anaemia [None]
